FAERS Safety Report 7406480-1 (Version None)
Quarter: 2011Q2

REPORT INFORMATION
  Report Type: 
  Country: None (occurrence: None)
  Receive Date: 20110405
  Receipt Date: 20110405
  Transmission Date: 20111010
  Serious: Yes (Other)
  Sender: FDA-Public Use
  Company Number: None

PATIENT
  Age: 18 Year
  Sex: Female
  Weight: 52.1637 kg

DRUGS (2)
  1. ADULT ROBITUSSIN DM MAX [Suspect]
     Indication: NASOPHARYNGITIS
     Dosage: 2 TSP.  ONE TIME PO
     Route: 048
     Dates: start: 20110331, end: 20110331
  2. ADULT ROBITUSSIN DM MAX [Suspect]
     Indication: COUGH
     Dosage: 2 TSP.  ONE TIME PO
     Route: 048
     Dates: start: 20110331, end: 20110331

REACTIONS (2)
  - DISORIENTATION [None]
  - SOMNOLENCE [None]
